FAERS Safety Report 5091832-8 (Version None)
Quarter: 2006Q3

REPORT INFORMATION
  Report Type: 
  Country: None (occurrence: None)
  Receive Date: 20060829
  Receipt Date: 20060628
  Transmission Date: 20061208
  Serious: Yes (Death, Hospitalization)
  Sender: FDA-Public Use
  Company Number: US-BRISTOL-MYERS SQUIBB COMPANY-13426853

PATIENT
  Age: 57 Year
  Sex: Male
  Weight: 52 kg

DRUGS (4)
  1. ERBITUX [Suspect]
     Indication: MALIGNANT NEOPLASM PROGRESSION
     Dates: start: 20051018
  2. CHEMOTHERAPY [Concomitant]
  3. ONCOVIN [Concomitant]
     Dates: start: 20051004
  4. PERCOCET [Concomitant]

REACTIONS (2)
  - MALIGNANT NEOPLASM PROGRESSION [None]
  - RESPIRATORY ARREST [None]
